FAERS Safety Report 9686628 (Version 4)
Quarter: 2014Q1

REPORT INFORMATION
  Report Type: Spontaneous
  Country: JP (occurrence: JP)
  Receive Date: 20131113
  Receipt Date: 20140121
  Transmission Date: 20141002
  Serious: Yes (Hospitalization, Disabling)
  Sender: FDA-Public Use
  Company Number: JP-GLAXOSMITHKLINE-B0942156A

PATIENT
  Age: 72 Year
  Sex: Male

DRUGS (10)
  1. REVOLADE [Suspect]
     Indication: IMMUNE THROMBOCYTOPENIC PURPURA
     Dosage: 50MG PER DAY
     Route: 048
     Dates: start: 20130709, end: 20131107
  2. PREDONINE [Suspect]
     Indication: PRODUCT USED FOR UNKNOWN INDICATION
     Route: 048
  3. PRAZAXA [Concomitant]
     Indication: ATRIAL FIBRILLATION
     Dosage: 220MG TWICE PER DAY
     Route: 048
  4. PARIET [Concomitant]
     Dosage: 10MG PER DAY
     Route: 048
  5. UNISIA [Concomitant]
     Indication: HYPERTENSION
     Dosage: 1IUAX PER DAY
     Route: 048
  6. GLACTIV [Concomitant]
     Indication: DIABETES MELLITUS
     Dosage: 50MG PER DAY
     Route: 048
  7. UBIRON [Concomitant]
     Dosage: 200MG PER DAY
     Route: 048
  8. UNKNOWN [Concomitant]
     Dosage: 200MG PER DAY
     Route: 048
  9. CALFINA [Concomitant]
     Dosage: .5MCG PER DAY
     Route: 048
  10. SEIBULE [Concomitant]
     Indication: DIABETES MELLITUS
     Dosage: 150MG THREE TIMES PER DAY
     Route: 048

REACTIONS (1)
  - Cerebral infarction [Recovered/Resolved with Sequelae]
